FAERS Safety Report 9570419 (Version 3)
Quarter: 2013Q4

REPORT INFORMATION
  Report Type: Spontaneous
  Country: US (occurrence: US)
  Receive Date: 20130930
  Receipt Date: 20131106
  Transmission Date: 20140711
  Serious: No
  Sender: FDA-Public Use
  Company Number: US-AMGEN-USASP2013063393

PATIENT
  Age: 71 Year
  Sex: Female

DRUGS (4)
  1. ENBREL [Suspect]
     Indication: RHEUMATOID ARTHRITIS
     Dosage: 50 MG, QWK
     Route: 058
     Dates: start: 2009
  2. ACIPHEX [Suspect]
     Indication: PRODUCT USED FOR UNKNOWN INDICATION
     Dosage: UNK
     Route: 065
  3. XANAX [Concomitant]
     Indication: ANXIETY
     Dosage: 0.20 UNK, QD
     Route: 048
  4. PLAQUENIL                          /00072602/ [Concomitant]
     Indication: RHEUMATOID ARTHRITIS
     Dosage: 200 UNK, QD
     Route: 048

REACTIONS (8)
  - Urticaria [Recovering/Resolving]
  - Local swelling [Recovered/Resolved]
  - Pruritus [Not Recovered/Not Resolved]
  - Hypersensitivity [Recovered/Resolved]
  - Lip swelling [Recovered/Resolved]
  - Swollen tongue [Recovered/Resolved]
  - Mechanical urticaria [Unknown]
  - Rash [Not Recovered/Not Resolved]
